FAERS Safety Report 16192015 (Version 2)
Quarter: 2019Q2

REPORT INFORMATION
  Report Type: Spontaneous
  Country: US (occurrence: US)
  Receive Date: 20190412
  Receipt Date: 20190425
  Transmission Date: 20190711
  Serious: Yes (Hospitalization, Other)
  Sender: FDA-Public Use
  Company Number: US-PFIZER INC-2019139548

PATIENT
  Age: 32 Year
  Sex: Male

DRUGS (1)
  1. DEXTROMETHORPHAN HYDROBROMIDE. [Suspect]
     Active Substance: DEXTROMETHORPHAN HYDROBROMIDE
     Dosage: UNK (ESCALATING DOSES)

REACTIONS (7)
  - Psychotic disorder [Unknown]
  - Drug abuse [Unknown]
  - Drug dependence [Unknown]
  - Hyperchloraemia [Unknown]
  - Overdose [Unknown]
  - Toxicity to various agents [Unknown]
  - Physical assault [Unknown]
